FAERS Safety Report 18644949 (Version 2)
Quarter: 2020Q4

REPORT INFORMATION
  Report Type: Spontaneous
  Country: US (occurrence: US)
  Receive Date: 20201221
  Receipt Date: 20201228
  Transmission Date: 20210114
  Serious: No
  Sender: FDA-Public Use
  Company Number: US-PFIZER INC-2020501251

PATIENT
  Age: 73 Year
  Sex: Female

DRUGS (1)
  1. RETACRIT [Suspect]
     Active Substance: EPOETIN ALFA-EPBX
     Indication: RED BLOOD CELL COUNT ABNORMAL
     Dosage: 100000 IU, WEEKLY, [INJECTION, ONCE A WEEK]
     Dates: start: 202012

REACTIONS (1)
  - Product dose omission issue [Unknown]
